FAERS Safety Report 20458949 (Version 1)
Quarter: 2022Q1

REPORT INFORMATION
  Report Type: Report from Study
  Country: BR (occurrence: BR)
  Receive Date: 20220211
  Receipt Date: 20220211
  Transmission Date: 20220423
  Serious: Yes (Death, Hospitalization)
  Sender: FDA-Public Use
  Company Number: BR-UCBSA-2021014540

PATIENT
  Age: 86 Year
  Sex: Female
  Weight: 55 kg

DRUGS (4)
  1. CERTOLIZUMAB PEGOL [Suspect]
     Active Substance: CERTOLIZUMAB PEGOL
     Indication: Ankylosing spondylitis
     Dosage: 400 MILLIGRAM, MONTHLY (QM)
     Route: 058
     Dates: start: 2019, end: 20210202
  2. MINERGI [Concomitant]
     Indication: Product used for unknown indication
     Dosage: 0.3/75-2 TABLETS DAILY
     Route: 048
     Dates: start: 2017
  3. ATIP XR [Concomitant]
     Indication: Depression
     Dosage: 50 MILLIGRAM, ONCE DAILY (QD)
     Route: 048
     Dates: start: 2020
  4. AMPLICTIL [CHLORPROMAZINE] [Concomitant]
     Indication: Product used for unknown indication
     Dosage: 40 MILLIGRAM, 25 DROPS
     Route: 048
     Dates: start: 2020

REACTIONS (5)
  - Respiratory tract infection [Fatal]
  - Vulval neoplasm [Fatal]
  - Pyrexia [Unknown]
  - Vaccination complication [Unknown]
  - COVID-19 immunisation [Unknown]

NARRATIVE: CASE EVENT DATE: 20210204
